FAERS Safety Report 6172870-0 (Version None)
Quarter: 2009Q2

REPORT INFORMATION
  Report Type: 
  Country: None (occurrence: None)
  Receive Date: 20090430
  Receipt Date: 20090423
  Transmission Date: 20091009
  Serious: Yes (Death)
  Sender: FDA-Public Use
  Company Number: TW-ROCHE-590492

PATIENT
  Age: 53 Year
  Sex: Female

DRUGS (3)
  1. CEFTRIAXONE SODIUM [Suspect]
     Dosage: INDICATION: BILIARY OBSTRUCTION
     Route: 065
     Dates: start: 20050414, end: 20050418
  2. CEFOXITIN [Suspect]
     Indication: TUMOUR ASSOCIATED FEVER
     Route: 065
     Dates: start: 20050408, end: 20050414
  3. METRONIDAZOLE [Concomitant]
     Dates: start: 20050414, end: 20050418

REACTIONS (2)
  - SEPTIC SHOCK [None]
  - TOXIC EPIDERMAL NECROLYSIS [None]
